FAERS Safety Report 10010666 (Version 1)
Quarter: 2014Q1

REPORT INFORMATION
  Report Type: Spontaneous
  Country: US (occurrence: US)
  Receive Date: 20140314
  Receipt Date: 20140314
  Transmission Date: 20141002
  Serious: No
  Sender: FDA-Public Use
  Company Number: US-DRREDDYS-USA/USA/14/0037670

PATIENT
  Age: 84 Year
  Sex: Male
  Weight: 100.3 kg

DRUGS (1)
  1. LANSOPRAZOLE DR CAPSULES 15MG OTC [Suspect]
     Indication: ANTACID THERAPY
     Route: 065
     Dates: start: 20140128, end: 20140128

REACTIONS (2)
  - Blood pressure increased [Recovering/Resolving]
  - Pulse abnormal [Unknown]
